FAERS Safety Report 8873867 (Version 1)
Quarter: 2012Q4

REPORT INFORMATION
  Report Type: 
  Country: US (occurrence: US)
  Receive Date: 20121030
  Receipt Date: 20121030
  Transmission Date: 20130627
  Serious: Yes (Death, Other)
  Sender: FDA-Public Use
  Company Number: US-ARROW-2012-18331

PATIENT
  Age: 15 Year
  Sex: Male

DRUGS (7)
  1. PREDNISONE [Suspect]
     Indication: RENAL TRANSPLANT
     Dosage: UNK
     Route: 065
  2. PREDNISONE [Suspect]
     Dosage: 10 mg every other day
     Route: 065
  3. AZATHIOPRINE [Suspect]
     Indication: RENAL TRANSPLANT
     Dosage: UNK
     Route: 065
  4. CYCLOSPORINE [Suspect]
     Indication: RENAL TRANSPLANT
     Dosage: UNK
     Route: 065
  5. SOLU-MEDROL [Suspect]
     Indication: RENAL TRANSPLANT
     Dosage: UNK
     Route: 065
  6. ANTITHYMOCYTE IMMUNOGLOBULIN [Suspect]
     Indication: RENAL TRANSPLANT
     Dosage: UNK
     Route: 065
  7. MYCOPHENOLATE MOFETIL (UNKNOWN) [Suspect]
     Indication: RENAL TRANSPLANT
     Dosage: 250 mg, daily
     Route: 065

REACTIONS (15)
  - Post transplant lymphoproliferative disorder [Recovered/Resolved]
  - Central nervous system neoplasm [Recovered/Resolved]
  - Epstein-Barr virus infection [Unknown]
  - Partial seizures [None]
  - Grand mal convulsion [None]
  - Nausea [None]
  - Haemodialysis [None]
  - Pyrexia [None]
  - Neutropenia [None]
  - Transplant rejection [None]
  - Clostridium difficile colitis [None]
  - Giardiasis [None]
  - Nephropathy toxic [None]
  - Cytomegalovirus duodenitis [None]
  - Epstein-Barr viraemia [None]
